FAERS Safety Report 9107424 (Version 1)
Quarter: 2013Q1

REPORT INFORMATION
  Report Type: Spontaneous
  Country: JP (occurrence: JP)
  Receive Date: 20130221
  Receipt Date: 20130221
  Transmission Date: 20140127
  Serious: Yes (Other)
  Sender: FDA-Public Use
  Company Number: JP-JNJFOC-20130204642

PATIENT
  Age: 3 Decade
  Sex: Male

DRUGS (1)
  1. HALOPERIDOL [Suspect]
     Indication: CHOREA
     Route: 048

REACTIONS (2)
  - Chorea [Recovering/Resolving]
  - Gait disturbance [Recovering/Resolving]
